FAERS Safety Report 20774392 (Version 1)
Quarter: 2022Q2

REPORT INFORMATION
  Report Type: Spontaneous
  Country: US (occurrence: None)
  Receive Date: 20220430
  Receipt Date: 20220430
  Transmission Date: 20220721
  Serious: Yes (Other)
  Sender: FDA-Public Use
  Company Number: None

PATIENT
  Age: 63 Year
  Sex: Male
  Weight: 96.75 kg

DRUGS (5)
  1. TARGET UP AND UP SPORT SPF 50 [Suspect]
     Active Substance: AVOBENZONE\HOMOSALATE\OCTISALATE\OCTOCRYLENE
     Indication: Prophylaxis against solar radiation
     Dosage: OTHER STRENGTH : SPF;?OTHER QUANTITY : 50 SPF;?FREQUENCY : DAILY;?
     Route: 061
     Dates: end: 20220422
  2. Aciphex , taken QAM. [Concomitant]
  3. hypertension medication, taken QAM [Concomitant]
  4. Occasional Tylenol [Concomitant]
  5. ADVIL [Concomitant]
     Active Substance: IBUPROFEN

REACTIONS (5)
  - Thermal burn [None]
  - Adverse reaction [None]
  - Rash [None]
  - Pain [None]
  - Skin discolouration [None]

NARRATIVE: CASE EVENT DATE: 20220421
